FAERS Safety Report 8609600-6 (Version None)
Quarter: 2012Q3

REPORT INFORMATION
  Report Type: 
  Country: None (occurrence: None)
  Receive Date: 20120821
  Receipt Date: 20120816
  Transmission Date: 20120928
  Serious: Yes (Death)
  Sender: FDA-Public Use
  Company Number: GB-ABBOTT-12P-167-0963163-00

PATIENT
  Sex: Female
  Weight: 95 kg

DRUGS (2)
  1. METHOTREXATE [Suspect]
     Indication: PSORIASIS
     Route: 048
     Dates: start: 20050101, end: 20120501
  2. HUMIRA [Suspect]
     Indication: PSORIASIS
     Dosage: HAD 6 INJECTIONS
     Route: 058
     Dates: end: 20120501

REACTIONS (2)
  - GLIOBLASTOMA [None]
  - HYDROCEPHALUS [None]
